FAERS Safety Report 17397099 (Version 3)
Quarter: 2021Q1

REPORT INFORMATION
  Report Type: Spontaneous
  Country: JP (occurrence: JP)
  Receive Date: 20200210
  Receipt Date: 20210120
  Transmission Date: 20210419
  Serious: Yes (Death, Life-Threatening, Hospitalization, Other)
  Sender: FDA-Public Use
  Company Number: JP-009507513-2002JPN000465J

PATIENT
  Age: 65 Year
  Sex: Female
  Weight: 45 kg

DRUGS (27)
  1. CLOTIAZEPAM [Concomitant]
     Active Substance: CLOTIAZEPAM
     Dosage: 5 MILLIGRAM, QD, AFTER SUPPER
     Route: 048
  2. HIRUDOID [Concomitant]
     Active Substance: GLYCOSAMINOGLYCANS
     Indication: DRY SKIN PROPHYLAXIS
     Dosage: UNK, BID
  3. POSTERISAN [Concomitant]
     Active Substance: LIDOCAINE
     Dosage: 2 GRAM, BID
     Route: 065
  4. PACLITAXEL ALBUMIN [Concomitant]
     Active Substance: PACLITAXEL
     Indication: LUNG SQUAMOUS CELL CARCINOMA STAGE IV
     Dosage: 140 MILLIGRAM, 3 TIMES EVERY 4 WEEKS
     Route: 041
     Dates: start: 20191205, end: 20200122
  5. TRANEXAMIC ACID. [Concomitant]
     Active Substance: TRANEXAMIC ACID
     Dosage: 250 MILLIGRAM, BID, AFTER LUNCH AND SUPPER
     Route: 048
  6. HIRUDOID [Concomitant]
     Active Substance: GLYCOSAMINOGLYCANS
     Indication: DRY SKIN PROPHYLAXIS
     Dosage: UNK, BID
  7. LOXOPROFEN NA [Concomitant]
     Active Substance: LOXOPROFEN SODIUM
     Dosage: 60 MILLIGRAM, TID, AFTER BREAKFAST, LUNCH, AND SUPPER,INCREASE OR DECREASE DEPENDING ON THE SYMPTOMS
     Route: 048
  8. GEBEN [Concomitant]
     Active Substance: SILVER SULFADIAZINE
     Dosage: UNK, SEVERAL TIMES A DAY
  9. FLUCONAZOLE. [Concomitant]
     Active Substance: FLUCONAZOLE
     Dosage: 100 MILLIGRAM, QD, AFTER SUPPER
     Route: 048
  10. LECICARBON [Concomitant]
     Active Substance: SODIUM BICARBONATE\SODIUM PHOSPHATE, MONOBASIC
     Indication: CONSTIPATION
     Dosage: UNK, PRN
     Route: 065
  11. RIZE [Concomitant]
     Active Substance: CLOTIAZEPAM
     Dosage: 5 MILLIGRAM, QD, AFTER SUPPER
     Route: 048
  12. ALPRAZOLAM. [Concomitant]
     Active Substance: ALPRAZOLAM
     Indication: NAUSEA
     Dosage: 0.4 MILLIGRAM, PRN
     Route: 048
  13. EMEND [Concomitant]
     Active Substance: APREPITANT
     Dosage: 80 MILLIGRAM, QD, AFTER BREAKFAST
     Route: 048
  14. MAGNESIUM OXIDE. [Concomitant]
     Active Substance: MAGNESIUM OXIDE
     Dosage: 330 MILLIGRAM, TID, AFTER BREAKFAST, LUNCH, AND SUPPER
     Route: 048
  15. KEYTRUDA [Suspect]
     Active Substance: PEMBROLIZUMAB
     Indication: LUNG SQUAMOUS CELL CARCINOMA STAGE IV
     Dosage: 200 MILLIGRAM, EVERY 4 WEEKS
     Route: 041
     Dates: start: 20191205, end: 20200108
  16. VITAMEDIN [Concomitant]
     Active Substance: CYANOCOBALAMIN\PYRIDOXINE HYDROCHLORIDE\THIAMINE
     Dosage: 1 DOSAGE FORM, TID, AFTER BREAKFAST, LUNCH, AND SUPPER
     Route: 048
  17. DECADRON [Concomitant]
     Active Substance: DEXAMETHASONE
     Dosage: 4 MILLIGRAM, QD, AFTER BREAKFAST
     Route: 048
  18. EMEND [Concomitant]
     Active Substance: APREPITANT
     Dosage: 125 MILLIGRAM, QD, BEFORE LUNCH
     Route: 048
  19. CARBOPLATIN. [Concomitant]
     Active Substance: CARBOPLATIN
     Indication: LUNG SQUAMOUS CELL CARCINOMA STAGE IV
     Dosage: 450 MILLIGRAM, EVERY 4 WEEKS
     Route: 041
     Dates: start: 20191205, end: 20200108
  20. PITAVASTATIN CALCIUM [Concomitant]
     Active Substance: PITAVASTATIN CALCIUM
     Dosage: 1 MILLIGRAM, QD, AFTER SUPPER
     Route: 048
  21. ADONA [Concomitant]
     Dosage: 30 MILLIGRAM, BID
     Route: 048
  22. DISTILLED WATER [Concomitant]
     Dosage: 500 MILLILITER
     Route: 042
  23. CALONAL [Concomitant]
     Active Substance: ACETAMINOPHEN
     Indication: PAIN
     Dosage: 1 DOSAGE FORM, PRN
     Route: 048
  24. BIOFERMIN R [Concomitant]
     Active Substance: DIETARY SUPPLEMENT\PROBIOTICS
     Dosage: 1 DOSAGE FORM, TID,SEVERAL TIMES A DAY
     Route: 048
  25. LANSOPRAZOLE OD [Concomitant]
     Active Substance: LANSOPRAZOLE
     Dosage: 15 MILLIGRAM, QD, AFTER SUPPER
     Route: 048
  26. DAIPHEN [Concomitant]
     Active Substance: SULFAMETHOXAZOLE\TRIMETHOPRIM
     Dosage: 1 DOSAGE FORM, QD, AFTER BREAKFAST
     Route: 048
  27. HACHIAZULE [Concomitant]
     Indication: LARYNGEAL PAIN
     Dosage: UNK, PRN
     Route: 065

REACTIONS (3)
  - Off label use [Unknown]
  - Small intestinal perforation [Not Recovered/Not Resolved]
  - Malignant neoplasm progression [Fatal]

NARRATIVE: CASE EVENT DATE: 202001
